FAERS Safety Report 10253059 (Version 1)
Quarter: 2014Q2

REPORT INFORMATION
  Report Type: Spontaneous
  Country: US (occurrence: US)
  Receive Date: 20140623
  Receipt Date: 20140623
  Transmission Date: 20141212
  Serious: Yes (Other)
  Sender: FDA-Public Use
  Company Number: US-BAYER-2014-091079

PATIENT
  Sex: Female

DRUGS (2)
  1. BAYER EXTRA STRENGTH ASPIRIN [Suspect]
     Indication: MIGRAINE
     Dosage: 2 DF, ONCE
     Route: 048
     Dates: start: 20140615, end: 20140615
  2. BAYER HEADACHE RELIEF [Suspect]
     Route: 048

REACTIONS (3)
  - Haemorrhage [Not Recovered/Not Resolved]
  - Drug ineffective [Unknown]
  - Intentional product misuse [Unknown]
